FAERS Safety Report 7099465-9 (Version None)
Quarter: 2010Q4

REPORT INFORMATION
  Report Type: 
  Country: None (occurrence: None)
  Receive Date: 20101104
  Receipt Date: 20101021
  Transmission Date: 20110411
  Serious: Yes (Hospitalization, Other)
  Sender: FDA-Public Use
  Company Number: US-001302

PATIENT
  Sex: Male
  Weight: 131.5431 kg

DRUGS (1)
  1. KUVAN [Suspect]
     Indication: PHENYLKETONURIA
     Dosage: (DOSE AND FREQUENCY UNKNOWN ORAL)
     Route: 048
     Dates: start: 20080915, end: 20100901

REACTIONS (6)
  - ASTHENIA [None]
  - COLITIS ULCERATIVE [None]
  - DIZZINESS [None]
  - GASTRITIS [None]
  - MUSCULAR WEAKNESS [None]
  - TREATMENT NONCOMPLIANCE [None]
